FAERS Safety Report 8348561-4 (Version None)
Quarter: 2012Q2

REPORT INFORMATION
  Report Type: 
  Country: None (occurrence: None)
  Receive Date: 20120509
  Receipt Date: 20120507
  Transmission Date: 20120825
  Serious: Yes (Other)
  Sender: FDA-Public Use
  Company Number: US-AMGEN-USASP2010005316

PATIENT
  Age: 21 Year
  Sex: Female
  Weight: 99.32 kg

DRUGS (3)
  1. CORTICOSTEROIDS [Concomitant]
  2. NPLATE [Suspect]
     Indication: IDIOPATHIC THROMBOCYTOPENIC PURPURA
     Dosage: 1 MUG/KG, QWK
     Route: 058
     Dates: start: 20101123, end: 20110106
  3. VITAMINS WITH MINERALS [Concomitant]
     Indication: PREGNANCY
     Route: 048

REACTIONS (2)
  - GESTATIONAL HYPERTENSION [None]
  - PREGNANCY [None]
